FAERS Safety Report 19899446 (Version 1)
Quarter: 2021Q3

REPORT INFORMATION
  Report Type: Report from Study
  Country: MX (occurrence: MX)
  Receive Date: 20210929
  Receipt Date: 20210929
  Transmission Date: 20211014
  Serious: Yes (Other)
  Sender: FDA-Public Use
  Company Number: NVSC2021MX219830

PATIENT
  Sex: Male
  Weight: 54 kg

DRUGS (5)
  1. EXFORGE [Suspect]
     Active Substance: AMLODIPINE BESYLATE\VALSARTAN
     Dosage: 1.5 DF, BID (STARTED 06 MONTHS AGO) (ONE TAB IN THE MORNING AND HALF TAB AT NIGHT)
     Route: 048
  2. METFORMIN [Concomitant]
     Active Substance: METFORMIN HYDROCHLORIDE
     Indication: BLOOD GLUCOSE INCREASED
     Dosage: 0.5 DF, BID (STARTED APPRX. 20 YEARS AGO
     Route: 048
     Dates: end: 20210318
  3. PINAVERIUM BROMIDE [Concomitant]
     Active Substance: PINAVERIUM BROMIDE
     Indication: ABDOMINAL DISCOMFORT
     Dosage: 1 DF, BID (APPROXIMATELY 10 YEARS AGO)
     Route: 048
  4. EXFORGE [Suspect]
     Active Substance: AMLODIPINE BESYLATE\VALSARTAN
     Indication: HYPERTENSION
     Dosage: 0.5 DF, BID (APPX. STARTED 4 YEARS AGO AND STOPPED 06 MONTHS AGO)
     Route: 048
  5. GALVUS MET [Suspect]
     Active Substance: METFORMIN HYDROCHLORIDE\VILDAGLIPTIN
     Indication: DIABETES MELLITUS
     Dosage: 1 DF, BID (APPR, 06 MONTHS AGO)
     Route: 048

REACTIONS (6)
  - Hypoacusis [Not Recovered/Not Resolved]
  - Diabetes mellitus [Not Recovered/Not Resolved]
  - Poor peripheral circulation [Unknown]
  - Gangrene [Unknown]
  - Off label use [Unknown]
  - Wrong technique in product usage process [Not Recovered/Not Resolved]
